FAERS Safety Report 7692551-1 (Version None)
Quarter: 2011Q3

REPORT INFORMATION
  Report Type: 
  Country: None (occurrence: None)
  Receive Date: 20110819
  Receipt Date: 20110808
  Transmission Date: 20111222
  Serious: Yes (Hospitalization, Disabling)
  Sender: FDA-Public Use
  Company Number: US-MERCK-0808USA04790

PATIENT
  Age: 64 Year
  Sex: Female

DRUGS (12)
  1. ATENOLOL [Concomitant]
     Route: 065
  2. FOSAMAX [Concomitant]
     Route: 048
  3. ALTACE [Concomitant]
     Route: 065
  4. TYLENOL-500 [Concomitant]
     Route: 065
  5. HUMALOG [Concomitant]
     Route: 065
  6. HYDROCHLOROTHIAZIDE [Concomitant]
     Route: 065
  7. VYTORIN [Suspect]
     Indication: BLOOD CHOLESTEROL INCREASED
     Route: 048
     Dates: start: 20061221, end: 20070110
  8. MANTAI [Concomitant]
     Route: 065
  9. SYNTHROID [Concomitant]
     Route: 065
  10. APRESOLINE [Concomitant]
     Route: 065
  11. ASPIRIN [Concomitant]
     Route: 065
  12. ZOCOR [Suspect]
     Route: 048

REACTIONS (42)
  - DIABETIC NEUROPATHY [None]
  - BURSITIS INFECTIVE [None]
  - NEUROPATHY PERIPHERAL [None]
  - NERVE ROOT COMPRESSION [None]
  - PAPULE [None]
  - AORTIC STENOSIS [None]
  - GAIT DISTURBANCE [None]
  - COMPLEX REGIONAL PAIN SYNDROME [None]
  - TROPONIN INCREASED [None]
  - ARTHRALGIA [None]
  - KIDNEY INFECTION [None]
  - DECUBITUS ULCER [None]
  - BLISTER [None]
  - NEUROMYOPATHY [None]
  - MYALGIA [None]
  - MOVEMENT DISORDER [None]
  - SKIN DISCOLOURATION [None]
  - SCIATICA [None]
  - STAPHYLOCOCCAL SKIN INFECTION [None]
  - RADICULOPATHY [None]
  - ADVERSE DRUG REACTION [None]
  - MUSCLE DISORDER [None]
  - STASIS DERMATITIS [None]
  - TOXICITY TO VARIOUS AGENTS [None]
  - OSTEOPOROSIS [None]
  - NODULE [None]
  - FLUID OVERLOAD [None]
  - PAIN IN EXTREMITY [None]
  - LYMPHOEDEMA [None]
  - SPINAL COLUMN STENOSIS [None]
  - BLOOD CREATINE PHOSPHOKINASE INCREASED [None]
  - PSEUDOEPITHELIOMATOUS HYPERPLASIA [None]
  - HYPERTENSION [None]
  - CAROTID ARTERY STENOSIS [None]
  - CELLULITIS [None]
  - SKIN ULCER [None]
  - OSTEOARTHRITIS [None]
  - BACK PAIN [None]
  - HYPOTHYROIDISM [None]
  - NERVE INJURY [None]
  - OEDEMA [None]
  - ALOPECIA [None]
